FAERS Safety Report 9214896 (Version 1)
Quarter: 2013Q2

REPORT INFORMATION
  Report Type: Spontaneous
  Country: CH (occurrence: CH)
  Receive Date: 20130405
  Receipt Date: 20130405
  Transmission Date: 20140414
  Serious: Yes (Other)
  Sender: FDA-Public Use
  Company Number: CH-BRISTOL-MYERS SQUIBB COMPANY-18724476

PATIENT
  Age: 20 Year
  Sex: Female

DRUGS (4)
  1. ABILIFY [Suspect]
     Dosage: 5MG/D SINCE MAR 2012
     Dates: start: 201203, end: 20120413
  2. TRANXILIUM [Suspect]
     Dates: end: 20120413
  3. CITALOPRAM [Suspect]
  4. LEVONORGESTREL [Suspect]
     Dates: start: 20120330, end: 20120331

REACTIONS (2)
  - Abortion induced [Unknown]
  - Pregnancy [Recovered/Resolved]
